FAERS Safety Report 5905917-4 (Version None)
Quarter: 2008Q4

REPORT INFORMATION
  Report Type: 
  Country: None (occurrence: None)
  Receive Date: 20081002
  Receipt Date: 20080919
  Transmission Date: 20090506
  Serious: Yes (Hospitalization)
  Sender: FDA-Public Use
  Company Number: US-WATSON-2008-05589

PATIENT
  Sex: Female

DRUGS (6)
  1. FENTANYL-25 [Suspect]
     Indication: PAIN
     Dosage: 1 PATCH, Q 24 HOURS
     Route: 062
     Dates: start: 20080910, end: 20080917
  2. FENTANYL-25 [Suspect]
     Indication: FIBROMYALGIA
  3. OXYCODONE HYDROCHLORIDE/ACETAMINOPHEN 7.5/500 (WATSON LABORATORIES) [Suspect]
     Indication: PAIN
     Dosage: 2 TABLETS, QID
     Route: 048
     Dates: start: 20050101, end: 20080917
  4. OXYCODONE HYDROCHLORIDE/ACETAMINOPHEN 7.5/500 (WATSON LABORATORIES) [Suspect]
     Indication: FIBROMYALGIA
  5. SUDAFED                            /00076302/ [Concomitant]
     Indication: DRUG USE FOR UNKNOWN INDICATION
     Dosage: OCCASSIONAL USE
  6. BENADRYL [Concomitant]
     Indication: DRUG USE FOR UNKNOWN INDICATION
     Dosage: OCCASSIONAL USE

REACTIONS (3)
  - DRUG INEFFECTIVE [None]
  - HEPATIC FAILURE [None]
  - PANCREATITIS [None]
